FAERS Safety Report 7312983-0 (Version None)
Quarter: 2011Q1

REPORT INFORMATION
  Report Type: 
  Country: None (occurrence: None)
  Receive Date: 20110224
  Receipt Date: 20110210
  Transmission Date: 20110831
  Serious: Yes (Death)
  Sender: FDA-Public Use
  Company Number: TW-MYLANLABS-2011S1003090

PATIENT
  Age: 66 Year
  Sex: Female

DRUGS (8)
  1. VANCOMYCIN [Suspect]
     Route: 033
  2. DAPTOMYCIN [Concomitant]
     Indication: LEUKOCYTOSIS
     Dosage: 6 MG/KG EVERY OTHER DAY
     Route: 042
  3. VANCOMYCIN [Suspect]
     Route: 042
  4. CEFEPIME [Concomitant]
     Indication: EVIDENCE BASED TREATMENT
     Route: 042
  5. TAZOCIN [Concomitant]
     Route: 065
  6. CEFEPIME [Concomitant]
     Route: 065
  7. VANCOMYCIN [Suspect]
     Indication: EVIDENCE BASED TREATMENT
     Dosage: 1 G/5 DAYS FROM DAYS 6-22
     Route: 042
  8. ERTAPENEM [Concomitant]
     Route: 065

REACTIONS (4)
  - PATHOGEN RESISTANCE [None]
  - PERITONITIS BACTERIAL [None]
  - ENTEROCOCCAL INFECTION [None]
  - SEPTIC SHOCK [None]
